FAERS Safety Report 7411089-X (Version None)
Quarter: 2011Q2

REPORT INFORMATION
  Report Type: 
  Country: None (occurrence: None)
  Receive Date: 20110413
  Receipt Date: 20101026
  Transmission Date: 20111010
  Serious: Yes (Death, Hospitalization, Other)
  Sender: FDA-Public Use
  Company Number: US-BRISTOL-MYERS SQUIBB COMPANY-13737499

PATIENT
  Age: 73 Year
  Sex: Female
  Weight: 68 kg

DRUGS (6)
  1. SODIUM BICARBONATE [Concomitant]
  2. ARANESP [Concomitant]
     Indication: ANAEMIA
  3. ERBITUX [Suspect]
     Indication: COLON CANCER
     Route: 042
     Dates: start: 20061102
  4. BENADRYL [Concomitant]
     Indication: PREMEDICATION
     Route: 042
  5. ACETAMINOPHEN [Concomitant]
  6. DARVOCET [Concomitant]

REACTIONS (3)
  - INFUSION RELATED REACTION [None]
  - CARDIO-RESPIRATORY ARREST [None]
  - RECTAL CANCER METASTATIC [None]
